FAERS Safety Report 21099522 (Version 5)
Quarter: 2023Q2

REPORT INFORMATION
  Report Type: Spontaneous
  Country: GB (occurrence: GB)
  Receive Date: 20220719
  Receipt Date: 20230626
  Transmission Date: 20230721
  Serious: Yes (Death, Hospitalization, Other)
  Sender: FDA-Public Use
  Company Number: GB-Actavis-081331

PATIENT
  Age: 52 Year
  Sex: Male
  Weight: 98.3 kg

DRUGS (8)
  1. CARBOPLATIN [Suspect]
     Active Substance: CARBOPLATIN
     Indication: Anal squamous cell carcinoma
     Dosage: UNK AUC 5 (ON DAY 1 OF EACH 28-DAY CYCLE)
     Route: 042
  2. CARBOPLATIN [Suspect]
     Active Substance: CARBOPLATIN
     Indication: Metastatic squamous cell carcinoma
     Dosage: AUC 5 (ON DAY 1 OF EACH 28-DAY CYCLE); START DATE: 28-OCT-2021
     Route: 042
  3. PACLITAXEL [Suspect]
     Active Substance: PACLITAXEL
     Indication: Anal squamous cell carcinoma
     Dosage: 80 MILLIGRAM/SQ. METER(ON DAYS 1, 8 AND 15 OF EACH 28-DAY CYCLE)(26-OCT-2021)
     Route: 042
     Dates: end: 20211026
  4. PACLITAXEL [Suspect]
     Active Substance: PACLITAXEL
     Indication: Metastatic squamous cell carcinoma
     Dosage: 80 MILLIGRAM/SQ. METER(ON DAYS 1, 8 AND 15 OF EACH 28-DAY CYCLE)(28-OCT-2021)
     Route: 042
  5. PACLITAXEL [Suspect]
     Active Substance: PACLITAXEL
     Dosage: 80 MILLIGRAM/SQ. METER (ON DAYS 1, 8 AND 15 OF EACH 28-DAY CYCLE), START DATE: 28-OCT-2021
     Route: 042
  6. GABAPENTIN [Suspect]
     Active Substance: GABAPENTIN
     Indication: Anal squamous cell carcinoma
     Dosage: UNK
     Route: 065
     Dates: start: 2021
  7. MORPHINE SULFATE [Suspect]
     Active Substance: MORPHINE SULFATE
     Indication: Product used for unknown indication
     Dosage: UNK
     Route: 065
     Dates: start: 2021
  8. MORPHINE SULFATE [Suspect]
     Active Substance: MORPHINE SULFATE
     Indication: Product used for unknown indication
     Dosage: UNK
     Route: 065
     Dates: start: 2021

REACTIONS (19)
  - Disease progression [Fatal]
  - Somnolence [Not Recovered/Not Resolved]
  - Wound infection [Not Recovered/Not Resolved]
  - Infusion related reaction [Recovered/Resolved]
  - Neutropenic sepsis [Recovered/Resolved]
  - Condition aggravated [Not Recovered/Not Resolved]
  - Inappropriate schedule of product administration [Unknown]
  - Haemoglobin decreased [Unknown]
  - Neutrophil count decreased [Unknown]
  - Platelet count decreased [Unknown]
  - White blood cell count decreased [Unknown]
  - Confusional state [Unknown]
  - Abdominal pain [Recovered/Resolved]
  - Chest pain [Recovered/Resolved]
  - Back pain [Recovered/Resolved]
  - Flushing [Recovered/Resolved]
  - Erythema [Recovered/Resolved]
  - Hyperhidrosis [Recovered/Resolved]
  - Agitation [Recovered/Resolved]

NARRATIVE: CASE EVENT DATE: 20211007
